FAERS Safety Report 8476594-6 (Version None)
Quarter: 2012Q2

REPORT INFORMATION
  Report Type: 
  Country: None (occurrence: None)
  Receive Date: 20120628
  Receipt Date: 20120621
  Transmission Date: 20120825
  Serious: Yes (Other)
  Sender: FDA-Public Use
  Company Number: NL-PFIZER INC-2012084661

PATIENT
  Age: 68 Year
  Sex: Female

DRUGS (13)
  1. PHENPROCOUMON [Concomitant]
     Dosage: UNK
     Dates: start: 20100329
  2. TEMAZEPAM [Concomitant]
     Dosage: 20 MG, AS NEEDED
     Dates: start: 20110303
  3. SINGULAIR [Concomitant]
     Dosage: 10 MG, 1X/DAY
     Dates: start: 20111102
  4. NEXIUM [Concomitant]
     Dosage: 20 MG, 2X/DAY
     Dates: start: 20120229
  5. NEBIVOLOL [Concomitant]
     Dosage: 5 MG, 2X/DAY
     Dates: start: 20120217
  6. MOLAXOLE [Concomitant]
     Dosage: 1 DF, 1X/DAY
     Dates: start: 20120216
  7. BUMETANIDE [Concomitant]
     Dosage: 2 MG, 2X/DAY
     Dates: start: 20100121
  8. SYMBICORT [Concomitant]
     Dosage: 1 DF, 2X/DAY
     Dates: start: 20100108
  9. FLUTICASONE PROPIONATE [Concomitant]
     Dosage: 2 DF, 2X/DAY
     Dates: start: 20100108
  10. REVATIO [Suspect]
     Indication: PULMONARY HYPERTENSION
     Dosage: 20 MG, 2X/DAY
     Dates: start: 20120216, end: 20120320
  11. INSPRA [Concomitant]
     Dosage: 50 MG, 1X/DAY
     Dates: start: 20100311
  12. PERINDOPRIL TERT-BUTYLAMINE [Concomitant]
     Dosage: 8 MG, 1X/DAY
     Dates: start: 20100121
  13. ZYRTEC [Concomitant]
     Dosage: 10 MG, 1X/DAY
     Dates: start: 20120302

REACTIONS (5)
  - HAEMORRHAGE [None]
  - FLUSHING [None]
  - OCULAR HYPERAEMIA [None]
  - INFLUENZA LIKE ILLNESS [None]
  - EPISTAXIS [None]
